FAERS Safety Report 7877019-1 (Version None)
Quarter: 2011Q4

REPORT INFORMATION
  Report Type: 
  Country: None (occurrence: None)
  Receive Date: 20111031
  Receipt Date: 20110803
  Transmission Date: 20120403
  Serious: No
  Sender: FDA-Public Use
  Company Number: US-ABBOTT-11P-163-0843479-00

PATIENT
  Sex: Female

DRUGS (3)
  1. CREON [Suspect]
     Indication: PANCREATIC DISORDER
  2. ANTIDEPRESSANTS [Concomitant]
     Indication: DEPRESSION
  3. CREON [Suspect]
     Indication: CYSTIC FIBROSIS

REACTIONS (10)
  - THINKING ABNORMAL [None]
  - GASTRIC DISORDER [None]
  - DEPRESSION [None]
  - ARTHRALGIA [None]
  - DIZZINESS [None]
  - FATIGUE [None]
  - WEIGHT DECREASED [None]
  - ARTHRITIS [None]
  - ANXIETY [None]
  - HEADACHE [None]
